FAERS Safety Report 24875063 (Version 1)
Quarter: 2025Q1

REPORT INFORMATION
  Report Type: Other
  Country: US (occurrence: US)
  Receive Date: 20250122
  Receipt Date: 20250122
  Transmission Date: 20250409
  Serious: Yes (Hospitalization, Other)
  Sender: GUARDIAN DRUG COMPANY
  Company Number: US-Guardian Drug Company-2169526

PATIENT
  Age: 58 Year
  Sex: Female

DRUGS (1)
  1. CHILDRENS IBUPROFEN [Suspect]
     Active Substance: IBUPROFEN
     Indication: Product used for unknown indication

REACTIONS (1)
  - Gastric ulcer [Recovered/Resolved]
